FAERS Safety Report 9800038 (Version 1)
Quarter: 2014Q1

REPORT INFORMATION
  Report Type: Spontaneous
  Country: US (occurrence: US)
  Receive Date: 20140106
  Receipt Date: 20140106
  Transmission Date: 20141002
  Serious: No
  Sender: FDA-Public Use
  Company Number: US-GILEAD-2010-0032111

PATIENT
  Age: 74 Year
  Sex: Female
  Weight: 52.62 kg

DRUGS (21)
  1. LETAIRIS [Suspect]
     Indication: PULMONARY ARTERIAL HYPERTENSION
     Route: 048
     Dates: start: 20100113
  2. METOPROLOL [Concomitant]
  3. COUMADIN [Concomitant]
  4. ASPIRIN [Concomitant]
  5. LASIX [Concomitant]
  6. OXYGEN [Concomitant]
  7. PRILOSEC [Concomitant]
  8. LOPERAMIDE [Concomitant]
  9. DOCUSTATE [Concomitant]
  10. BENEFIBER [Concomitant]
  11. DARVOCET [Concomitant]
  12. LIDODERM [Concomitant]
  13. FORTEO [Concomitant]
  14. LEVOTHYROXINE [Concomitant]
  15. AMBIEN [Concomitant]
  16. MUPIROCIN [Concomitant]
  17. MULTIVITAMIN [Concomitant]
  18. IRON [Concomitant]
  19. VITRON-C PLUS [Concomitant]
  20. OMEGA 3 [Concomitant]
  21. VITAMIN D [Concomitant]

REACTIONS (2)
  - Night sweats [Unknown]
  - Flushing [Unknown]
